FAERS Safety Report 10145014 (Version 1)
Quarter: 2014Q2

REPORT INFORMATION
  Report Type: Spontaneous
  Country: FR (occurrence: FR)
  Receive Date: 20140501
  Receipt Date: 20140501
  Transmission Date: 20141212
  Serious: Yes (Hospitalization)
  Sender: FDA-Public Use
  Company Number: FR-AMGEN-FRASP2014031239

PATIENT
  Age: 46 Year
  Sex: Male

DRUGS (6)
  1. ENBREL [Suspect]
     Indication: ANKYLOSING SPONDYLITIS
     Dosage: 1 DF, WEEKLY
     Route: 058
     Dates: start: 2008, end: 20131213
  2. METHOTREXATE SODIUM [Suspect]
     Indication: ANKYLOSING SPONDYLITIS
     Dosage: 15 MG, WEEKLY
     Route: 048
     Dates: start: 2007, end: 20131220
  3. SPECIAFOLDINE [Concomitant]
     Dosage: 10 MG, WEEKLY
  4. APRANAX                            /00256201/ [Concomitant]
     Dosage: 550 MG, 2X/DAY
  5. TOPALGIC                           /00599202/ [Concomitant]
     Dosage: 150 MG, 2X/DAY
  6. OMEPRAZOLE [Concomitant]
     Dosage: 20 MG, DAILY

REACTIONS (2)
  - Plasma cell myeloma [Not Recovered/Not Resolved]
  - Ankylosing spondylitis [Unknown]
